FAERS Safety Report 5246408-6 (Version None)
Quarter: 2007Q1

REPORT INFORMATION
  Report Type: 
  Country: None (occurrence: None)
  Receive Date: 20070222
  Receipt Date: 20070222
  Transmission Date: 20070707
  Serious: Yes (Hospitalization)
  Sender: FDA-Public Use
  Company Number: None

PATIENT
  Age: 55 Year
  Sex: Male

DRUGS (4)
  1. ASPIRIN [Suspect]
     Dosage: 81MG  EVERY DAY PO
     Route: 048
     Dates: start: 20050318, end: 20070220
  2. HYDROCHLOROTHIAZIDE [Concomitant]
  3. LISINOPRIL [Concomitant]
  4. SIMVASTATIN [Concomitant]

REACTIONS (3)
  - DIVERTICULUM [None]
  - GASTRIC HAEMORRHAGE [None]
  - RECTAL HAEMORRHAGE [None]
